FAERS Safety Report 6034890-6 (Version None)
Quarter: 2009Q1

REPORT INFORMATION
  Report Type: 
  Country: None (occurrence: None)
  Receive Date: 20090108
  Receipt Date: 20090108
  Transmission Date: 20090719
  Serious: No
  Sender: FDA-Public Use
  Company Number: None

PATIENT
  Age: 67 Year
  Sex: Female
  Weight: 77.1115 kg

DRUGS (1)
  1. DETROL LA [Suspect]
     Indication: INCONTINENCE
     Dosage: ONCE DAILY PO  (DURATION: YEARS)
     Route: 048

REACTIONS (7)
  - ANGER [None]
  - DRY EYE [None]
  - DRY MOUTH [None]
  - LETHARGY [None]
  - NASAL DRYNESS [None]
  - PERSONALITY CHANGE [None]
  - SOMNOLENCE [None]
